FAERS Safety Report 4485111-7 (Version None)
Quarter: 2004Q4

REPORT INFORMATION
  Report Type: 
  Country: None (occurrence: None)
  Receive Date: 20041026
  Receipt Date: 20031014
  Transmission Date: 20050328
  Serious: No
  Sender: FDA-Public Use
  Company Number: US-BRISTOL-MYERS SQUIBB COMPANY-12410932

PATIENT
  Age: 62 Year
  Sex: Female
  Weight: 91 kg

DRUGS (15)
  1. GLUCOPHAGE XR [Suspect]
     Indication: DIABETES MELLITUS
     Route: 048
  2. AVAPRO [Concomitant]
     Indication: HYPERTENSION
     Dosage: DURATION OF THERAPY:  ^4-5 YEARS^
  3. HUMALOG [Concomitant]
  4. LANTUS [Concomitant]
  5. LASIX [Concomitant]
  6. NORVASC [Concomitant]
  7. CLARINEX [Concomitant]
  8. POTASSIUM [Concomitant]
  9. CHROMIUM [Concomitant]
  10. HORMONES [Concomitant]
  11. MAGNESIUM [Concomitant]
  12. PRILOSEC [Concomitant]
  13. LIPITOR [Concomitant]
  14. SYNTHROID [Concomitant]
  15. ASPIRIN [Concomitant]

REACTIONS (4)
  - BLOOD GLUCOSE INCREASED [None]
  - DYSPHAGIA [None]
  - NAUSEA [None]
  - VOMITING [None]
